FAERS Safety Report 4661950-4 (Version None)
Quarter: 2005Q2

REPORT INFORMATION
  Report Type: 
  Country: None (occurrence: None)
  Receive Date: 20050513
  Receipt Date: 20050105
  Transmission Date: 20051028
  Serious: Yes (Life-Threatening, Hospitalization)
  Sender: FDA-Public Use
  Company Number: DE-MERCK-0501DEU00149

PATIENT
  Age: 62 Year
  Sex: Male

DRUGS (9)
  1. VIOXX [Suspect]
     Indication: CAUDA EQUINA SYNDROME
     Route: 048
     Dates: start: 20010101, end: 20040601
  2. VIOXX [Suspect]
     Indication: PAIN
     Route: 048
     Dates: start: 20010101, end: 20040601
  3. FLUPIRTINE MALEATE [Concomitant]
     Indication: ANALGESIC THERAPY
     Route: 065
     Dates: start: 20000101
  4. LEVOTHYROXINE SODIUM [Concomitant]
     Indication: HYPOTHYROIDISM
     Route: 048
     Dates: start: 19890101
  5. ASCORBIC ACID AND ASPIRIN [Concomitant]
     Route: 065
  6. RISEDRONATE SODIUM [Concomitant]
     Route: 048
     Dates: start: 20010701
  7. ACETYLDIGOXIN [Concomitant]
     Route: 048
     Dates: start: 20011207, end: 20020901
  8. VERAPAMIL HYDROCHLORIDE [Concomitant]
     Route: 048
     Dates: start: 20011207
  9. ATORVASTATIN CALCIUM [Concomitant]
     Route: 048
     Dates: start: 20011207

REACTIONS (15)
  - ACANTHOMA [None]
  - ANGINA PECTORIS [None]
  - BASAL CELL CARCINOMA [None]
  - CHEST PAIN [None]
  - DIZZINESS [None]
  - ECZEMA [None]
  - HYPERTENSION [None]
  - MIGRAINE [None]
  - NAUSEA [None]
  - PALPITATIONS [None]
  - RESTLESSNESS [None]
  - TACHYARRHYTHMIA [None]
  - TINNITUS [None]
  - VENTRICULAR FIBRILLATION [None]
  - VENTRICULAR HYPERTROPHY [None]
